FAERS Safety Report 5513885-2 (Version None)
Quarter: 2007Q4

REPORT INFORMATION
  Report Type: 
  Country: None (occurrence: None)
  Receive Date: 20071106
  Receipt Date: 20061009
  Transmission Date: 20080405
  Serious: Yes (Hospitalization)
  Sender: FDA-Public Use
  Company Number: US200610001343

PATIENT
  Age: 55 Year
  Sex: Male
  Weight: 76.6 kg

DRUGS (6)
  1. PROZAC [Suspect]
     Indication: DEPRESSION
     Dosage: 40 MG, DAILY (1/D), ORAL
     Route: 048
  2. OXYCONTIN [Concomitant]
  3. OXYCODONE HCL [Concomitant]
  4. XANAX /USA/ (ALPRAZOLAM) [Concomitant]
  5. LOPID [Concomitant]
  6. KADIAN [Concomitant]

REACTIONS (6)
  - COGNITIVE DISORDER [None]
  - DRUG WITHDRAWAL SYNDROME [None]
  - FATIGUE [None]
  - INTENTIONAL OVERDOSE [None]
  - SEDATION [None]
  - SUICIDE ATTEMPT [None]
